FAERS Safety Report 9608210 (Version 1)
Quarter: 2013Q4

REPORT INFORMATION
  Report Type: Spontaneous
  Country: FR (occurrence: None)
  Receive Date: 20131007
  Receipt Date: 20131007
  Transmission Date: 20140711
  Serious: Yes (Hospitalization)
  Sender: FDA-Public Use
  Company Number: 2013000266

PATIENT
  Age: 79 Year
  Sex: Male

DRUGS (11)
  1. ACEON (PERINDOPRIL ERBUMINE) TABLET [Suspect]
     Indication: HYPERTENSION
     Dosage: 10 MG, QD, ORAL
     Route: 048
     Dates: end: 20130826
  2. DICLOFENAC (DICLOFENAC) [Suspect]
     Indication: BACK PAIN
     Dosage: UNK, ORAL
     Route: 048
     Dates: start: 201308, end: 201308
  3. JANUVIA (SITAGLIPTIN PHOSPHATE) [Concomitant]
  4. MOLSIDOMINE (MOLSIDOMINE) [Concomitant]
  5. LERGAN (SERRAPEPTASE) [Concomitant]
  6. BISOPROLOL (BISOPROLOL FUMARATE) [Concomitant]
  7. ALLOPURINOL [Concomitant]
  8. COLCHICINE (COLCHICINE) [Concomitant]
  9. PANTOPRAZOLE SODIUM SESQUIHYDRATE (PANTOPRAZOLE SODIUM SESQUIHYDRATE) [Concomitant]
  10. CORDARONE (AMIODARONE HYDROCHLORIDE)/ORAL/TABLET/200 MILLIGRAMS(S) [Concomitant]
  11. INEGY (EZETIMIBE, SIMVASTATIN) [Concomitant]

REACTIONS (5)
  - Vertigo positional [None]
  - Electrocardiogram abnormal [None]
  - Renal failure acute [None]
  - Hyperkalaemia [None]
  - Back pain [None]
